FAERS Safety Report 22273408 (Version 1)
Quarter: 2023Q2

REPORT INFORMATION
  Report Type: Spontaneous
  Country: CN (occurrence: CN)
  Receive Date: 20230502
  Receipt Date: 20230502
  Transmission Date: 20230722
  Serious: Yes (Death, Hospitalization)
  Sender: FDA-Public Use
  Company Number: CN-drreddys-LIT/CHN/23/0164685

PATIENT
  Age: 53 Year
  Sex: Female

DRUGS (4)
  1. CLOPIDOGREL [Suspect]
     Active Substance: CLOPIDOGREL BISULFATE
     Indication: Antiplatelet therapy
  2. ASPIRIN [Suspect]
     Active Substance: ASPIRIN
     Indication: Antiplatelet therapy
  3. RIVAROXABAN [Suspect]
     Active Substance: RIVAROXABAN
     Indication: Pulmonary embolism
  4. UNSPECIFIED INGREDIENT [Suspect]
     Active Substance: UNSPECIFIED INGREDIENT
     Indication: Thrombosis prophylaxis

REACTIONS (8)
  - Death [Fatal]
  - Interventricular septum rupture [Unknown]
  - Peripheral artery thrombosis [Unknown]
  - Gastrointestinal haemorrhage [Unknown]
  - Cardiac failure [Unknown]
  - Multiple organ dysfunction syndrome [Unknown]
  - Gangrene [Unknown]
  - Thrombocytopenia [Unknown]
